FAERS Safety Report 14966366 (Version 4)
Quarter: 2019Q3

REPORT INFORMATION
  Report Type: Report from Study
  Country: US (occurrence: US)
  Receive Date: 20180604
  Receipt Date: 20190829
  Transmission Date: 20191004
  Serious: Yes (Other)
  Sender: FDA-Public Use
  Company Number: US-ALEXION PHARMACEUTICALS INC.-A201806766

PATIENT
  Sex: Female

DRUGS (1)
  1. SOLIRIS [Suspect]
     Active Substance: ECULIZUMAB
     Indication: PAROXYSMAL NOCTURNAL HAEMOGLOBINURIA
     Dosage: 900 MG, Q2W
     Route: 042
     Dates: start: 20121114

REACTIONS (22)
  - Cough [Unknown]
  - Thyroid disorder [Unknown]
  - Ill-defined disorder [Unknown]
  - Pyrexia [Unknown]
  - Blood lactate dehydrogenase increased [Recovering/Resolving]
  - Weight decreased [Unknown]
  - Conjunctivitis [Unknown]
  - Dyspnoea [Unknown]
  - Red blood cell count decreased [Recovered/Resolved]
  - Rhinovirus infection [Unknown]
  - Nasopharyngitis [Not Recovered/Not Resolved]
  - Fatigue [Not Recovered/Not Resolved]
  - Neuropathy peripheral [Not Recovered/Not Resolved]
  - Haemoglobin decreased [Recovering/Resolving]
  - Heart rate increased [Unknown]
  - Sneezing [Unknown]
  - Influenza like illness [Unknown]
  - Upper-airway cough syndrome [Unknown]
  - Arthritis [Not Recovered/Not Resolved]
  - Glaucoma [Not Recovered/Not Resolved]
  - Blepharitis [Unknown]
  - Vision blurred [Not Recovered/Not Resolved]

NARRATIVE: CASE EVENT DATE: 20180522
